FAERS Safety Report 8964434 (Version 1)
Quarter: 2012Q4

REPORT INFORMATION
  Report Type: 
  Country: US (occurrence: US)
  Receive Date: 20121214
  Receipt Date: 20121214
  Transmission Date: 20130627
  Serious: No
  Sender: FDA-Public Use
  Company Number: US-GLAXOSMITHKLINE-A0988779A

PATIENT
  Age: 70 Year
  Sex: Male

DRUGS (2)
  1. AVODART [Suspect]
     Indication: BENIGN PROSTATIC HYPERPLASIA
     Dosage: 1CAP Per day
     Route: 048
     Dates: start: 201109, end: 20120515
  2. NO CONCURRENT MEDICATION [Concomitant]

REACTIONS (4)
  - Semen viscosity decreased [Recovering/Resolving]
  - Semen volume decreased [Recovering/Resolving]
  - Libido decreased [Recovering/Resolving]
  - Ejaculation disorder [Recovering/Resolving]
